FAERS Safety Report 9423567 (Version 1)
Quarter: 2013Q3

REPORT INFORMATION
  Report Type: Spontaneous
  Country: CH (occurrence: CH)
  Receive Date: 20130726
  Receipt Date: 20130726
  Transmission Date: 20140515
  Serious: Yes (Disabling)
  Sender: FDA-Public Use
  Company Number: CH-PFIZER INC-2013217808

PATIENT
  Age: 73 Year
  Sex: Female

DRUGS (9)
  1. METHOTREXATE SODIUM [Suspect]
     Indication: RHEUMATOID ARTHRITIS
     Dosage: 2.5 MG, WEEKLY
     Route: 048
     Dates: start: 1996
  2. AROMASIN [Suspect]
     Indication: BREAST CANCER
     Dosage: 25 MG, 1X/DAY
     Route: 048
     Dates: start: 2013
  3. ZOMETA [Suspect]
     Indication: BREAST CANCER
     Dosage: 4 MG, MONTHLY
     Route: 041
     Dates: start: 2004
  4. AFINITOR [Suspect]
     Indication: BREAST CANCER
     Dosage: 5 MG, 1X/DAY
     Route: 048
  5. FASLODEX [Suspect]
     Indication: BREAST CANCER
     Dosage: UNK
     Route: 048
     Dates: start: 201012, end: 201301
  6. TAMOXIFEN [Suspect]
     Indication: BREAST CANCER
     Dosage: UNK
     Route: 048
     Dates: start: 2008, end: 2010
  7. FEMARA [Suspect]
     Indication: BREAST CANCER
     Dosage: UNK
     Route: 048
     Dates: start: 2004, end: 2008
  8. ZALDIAR [Concomitant]
     Indication: PAIN
     Dosage: 4 DF, AS NEEDED
     Route: 048
  9. TRAMAL [Concomitant]
     Indication: PAIN
     Dosage: 200 MG, 2X/DAY
     Route: 048

REACTIONS (1)
  - Osteonecrosis [Not Recovered/Not Resolved]
